FAERS Safety Report 4985565-3 (Version None)
Quarter: 2006Q2

REPORT INFORMATION
  Report Type: 
  Country: None (occurrence: None)
  Receive Date: 20060428
  Receipt Date: 20050509
  Transmission Date: 20061013
  Serious: No
  Sender: FDA-Public Use
  Company Number: US-GLAXOSMITHKLINE-A0557777A

PATIENT
  Age: 72 Year
  Sex: Female

DRUGS (6)
  1. SEREVENT [Suspect]
     Indication: DRUG USE FOR UNKNOWN INDICATION
     Route: 055
  2. FOSAMAX [Concomitant]
  3. COZAAR [Concomitant]
  4. ZANTAC [Concomitant]
  5. NORVASC [Concomitant]
  6. OSCAL [Concomitant]

REACTIONS (1)
  - RASH [None]
